FAERS Safety Report 8577175-6 (Version None)
Quarter: 2012Q3

REPORT INFORMATION
  Report Type: 
  Country: None (occurrence: None)
  Receive Date: 20120807
  Receipt Date: 20120802
  Transmission Date: 20120928
  Serious: Yes (Other)
  Sender: FDA-Public Use
  Company Number: GB-ABBOTT-12P-167-0964373-00

PATIENT
  Age: 32 Year
  Sex: Female
  Weight: 49.8 kg

DRUGS (5)
  1. HUMIRA [Suspect]
     Indication: CROHN'S DISEASE
     Route: 058
     Dates: start: 20120430, end: 20120430
  2. HUMIRA [Suspect]
     Route: 058
     Dates: end: 20120617
  3. PENTASA [Concomitant]
     Indication: PRODUCT USED FOR UNKNOWN INDICATION
  4. AZATHIOPRINE [Concomitant]
     Indication: PRODUCT USED FOR UNKNOWN INDICATION
  5. MERCAPTOPURINE [Concomitant]
     Indication: PRODUCT USED FOR UNKNOWN INDICATION

REACTIONS (5)
  - HEADACHE [None]
  - OCULAR DISCOMFORT [None]
  - PHOTOSENSITIVITY REACTION [None]
  - MUSCULOSKELETAL STIFFNESS [None]
  - LETHARGY [None]
